FAERS Safety Report 20110347 (Version 1)
Quarter: 2021Q4

REPORT INFORMATION
  Report Type: Spontaneous
  Country: US (occurrence: US)
  Receive Date: 20211124
  Receipt Date: 20211124
  Transmission Date: 20220303
  Serious: No
  Sender: FDA-Public Use
  Company Number: US-NOVOPROD-780549

PATIENT
  Sex: Male

DRUGS (1)
  1. NOVOLOG [Suspect]
     Active Substance: INSULIN ASPART
     Indication: Product used for unknown indication
     Dosage: 21 IU, QD
     Route: 065

REACTIONS (3)
  - Confusional state [Recovered/Resolved]
  - Panic reaction [Unknown]
  - Device malfunction [Recovered/Resolved]
